FAERS Safety Report 7249090-1 (Version None)
Quarter: 2011Q1

REPORT INFORMATION
  Report Type: 
  Country: None (occurrence: None)
  Receive Date: 20110128
  Receipt Date: 20101029
  Transmission Date: 20110831
  Serious: Yes (Other)
  Sender: FDA-Public Use
  Company Number: US-BAYER-201041084NA

PATIENT
  Sex: Female
  Weight: 53.636 kg

DRUGS (14)
  1. ADVAIR [Concomitant]
     Indication: ASTHMA
     Dates: start: 20030101
  2. SINGULAIR [Concomitant]
     Indication: ASTHMA
     Dates: start: 20090101
  3. LUNESTA [Concomitant]
  4. DROSPIRENONE + ETHINYLESTRADIOL 20?G (24+4) [Suspect]
     Indication: CONTRACEPTION
     Dates: start: 20080801, end: 20080901
  5. ALBUTEROL [Concomitant]
     Indication: ASTHMA
     Dates: start: 20020101
  6. ALLEGRA [Concomitant]
     Indication: MULTIPLE ALLERGIES
     Dates: start: 20090101
  7. YASMIN [Suspect]
     Dates: start: 20090101, end: 20090301
  8. IBUPROFEN [Concomitant]
     Indication: LIMB INJURY
     Dates: start: 20090101
  9. OMEPRAZOLE [Concomitant]
     Indication: ABDOMINAL PAIN
     Dates: start: 20080101, end: 20100101
  10. DROSPIRENONE + ETHINYLESTRADIOL 20?G (24+4) [Suspect]
     Dates: start: 20081101, end: 20081101
  11. YASMIN [Suspect]
     Dates: start: 20080701, end: 20081101
  12. YASMIN [Suspect]
     Indication: CONTRACEPTION
     Dates: start: 20070901, end: 20071201
  13. YASMIN [Suspect]
     Dates: start: 20080101, end: 20080401
  14. YASMIN [Suspect]
     Dates: start: 20090301, end: 20090801

REACTIONS (2)
  - ABDOMINAL PAIN UPPER [None]
  - BILIARY DYSKINESIA [None]
